FAERS Safety Report 6198174-8 (Version None)
Quarter: 2009Q2

REPORT INFORMATION
  Report Type: 
  Country: None (occurrence: None)
  Receive Date: 20090521
  Receipt Date: 20090518
  Transmission Date: 20091009
  Serious: Yes (Hospitalization, Other)
  Sender: FDA-Public Use
  Company Number: FI-ROCHE-633437

PATIENT
  Sex: Female

DRUGS (2)
  1. XELODA [Suspect]
     Indication: RECTAL CANCER METASTATIC
     Dosage: TWICE DAILY FOR 14 DAYS FOLLOWED BY A 7-DAY REST PERIOD
     Route: 048
     Dates: start: 20090301
  2. AVASTIN [Suspect]
     Indication: RECTAL CANCER METASTATIC
     Route: 042
     Dates: start: 20090406

REACTIONS (2)
  - CHEST PAIN [None]
  - FEMALE GENITAL TRACT FISTULA [None]
